FAERS Safety Report 13429185 (Version 1)
Quarter: 2017Q2

REPORT INFORMATION
  Report Type: Report from Study
  Country: JP (occurrence: JP)
  Receive Date: 20170411
  Receipt Date: 20170411
  Transmission Date: 20170830
  Serious: Yes (Death, Life-Threatening, Hospitalization, Other)
  Sender: FDA-Public Use
  Company Number: PHHY2010JP099911

PATIENT
  Age: 78 Year
  Sex: Female
  Weight: 50 kg

DRUGS (17)
  1. MUCOSTA [Concomitant]
     Active Substance: REBAMIPIDE
     Indication: PAIN MANAGEMENT
     Dosage: UNK
     Route: 048
     Dates: end: 20091120
  2. TYKERB [Suspect]
     Active Substance: LAPATINIB DITOSYLATE
     Indication: BREAST CANCER
     Dosage: 1250 MG, QD
     Route: 048
     Dates: start: 20091015, end: 20091120
  3. MEXITIL [Suspect]
     Active Substance: MEXILETINE HYDROCHLORIDE
     Indication: NEURALGIA
     Dosage: 200 MG, QD
     Route: 048
     Dates: start: 20091105, end: 20091109
  4. GABAPEN [Concomitant]
     Active Substance: GABAPENTIN
     Indication: PAIN MANAGEMENT
     Dosage: UNK UNK, QD
     Route: 048
     Dates: end: 20091120
  5. OXYCONTIN [Concomitant]
     Active Substance: OXYCODONE HYDROCHLORIDE
     Indication: PAIN MANAGEMENT
     Dosage: UNK UNK, QD
     Route: 048
     Dates: end: 20091120
  6. MEXITIL [Suspect]
     Active Substance: MEXILETINE HYDROCHLORIDE
     Indication: NEURALGIA
     Dosage: 300 MG, QD
     Route: 048
     Dates: start: 20090907, end: 20091001
  7. MEXITIL [Suspect]
     Active Substance: MEXILETINE HYDROCHLORIDE
     Indication: NEURALGIA
     Dosage: 200 MG, QD
     Route: 048
     Dates: start: 20091015, end: 20091029
  8. MEXITIL [Suspect]
     Active Substance: MEXILETINE HYDROCHLORIDE
     Indication: NEURALGIA
     Dosage: 300 MG, QD
     Route: 048
     Dates: start: 20091030, end: 20091104
  9. CEROCRAL [Concomitant]
     Active Substance: IFENPRODIL
     Indication: PAIN MANAGEMENT
     Dosage: UNK UNK, QD
     Route: 048
     Dates: end: 20091120
  10. MAGMITT [Concomitant]
     Active Substance: MAGNESIUM OXIDE
     Indication: CONSTIPATION
     Dosage: UNK UNK, QD
     Route: 048
     Dates: end: 20091120
  11. OXINORM [Concomitant]
     Active Substance: OXYCODONE HYDROCHLORIDE
     Indication: PAIN MANAGEMENT
     Dosage: UNK UNK, QD
     Route: 048
     Dates: end: 20091120
  12. RINDERON V [Concomitant]
     Active Substance: BETAMETHASONE VALERATE
     Indication: PAIN MANAGEMENT
     Dosage: 1 DF, QD
     Route: 048
     Dates: end: 20091120
  13. OXYCODONE HYDROCHLORIDE AND IBUPROFEN [Concomitant]
     Active Substance: IBUPROFEN\OXYCODONE HYDROCHLORIDE
     Indication: PRODUCT USED FOR UNKNOWN INDICATION
     Dosage: UNK
     Route: 065
  14. XELODA [Suspect]
     Active Substance: CAPECITABINE
     Indication: PRODUCT USED FOR UNKNOWN INDICATION
     Dosage: 1200 MG, BID
     Route: 048
     Dates: start: 20091016, end: 20091030
  15. DUROTEP [Concomitant]
     Active Substance: FENTANYL
     Indication: PAIN MANAGEMENT
     Dosage: UNK UNK, QD
     Route: 062
     Dates: end: 20091120
  16. MEXITIL [Suspect]
     Active Substance: MEXILETINE HYDROCHLORIDE
     Indication: NEURALGIA
     Dosage: 400 MG, QD
     Route: 048
     Dates: start: 20091002, end: 20091014
  17. HYPEN [Concomitant]
     Active Substance: ETODOLAC
     Indication: PAIN MANAGEMENT
     Dosage: UNK UNK, QD
     Route: 048
     Dates: end: 20091120

REACTIONS (10)
  - Ileus [Not Recovered/Not Resolved]
  - Tremor [Recovering/Resolving]
  - Breast cancer [Fatal]
  - Diarrhoea [Recovered/Resolved]
  - Hypocalcaemia [Recovered/Resolved]
  - Erythema [Not Recovered/Not Resolved]
  - Abdominal distension [Unknown]
  - Drug level increased [Recovered/Resolved]
  - Hypokalaemia [Recovered/Resolved]
  - Sepsis [Not Recovered/Not Resolved]

NARRATIVE: CASE EVENT DATE: 20091021
